FAERS Safety Report 23127901 (Version 1)
Quarter: 2023Q4

REPORT INFORMATION
  Report Type: Spontaneous
  Country: US (occurrence: None)
  Receive Date: 20231031
  Receipt Date: 20231031
  Transmission Date: 20240110
  Serious: No
  Sender: FDA-Public Use
  Company Number: 2023A241823

PATIENT
  Sex: Female

DRUGS (1)
  1. BREZTRI [Suspect]
     Active Substance: BUDESONIDE\FORMOTEROL\GLYCOPYRROLATE
     Indication: Emphysema
     Route: 055

REACTIONS (5)
  - Alopecia [Unknown]
  - Skin burning sensation [Unknown]
  - Blood pressure abnormal [Unknown]
  - Skin discolouration [Unknown]
  - Rash [Unknown]
